FAERS Safety Report 8204112-6 (Version None)
Quarter: 2012Q1

REPORT INFORMATION
  Report Type: 
  Country: None (occurrence: None)
  Receive Date: 20120227
  Receipt Date: 20120117
  Transmission Date: 20120608
  Serious: Yes (Other)
  Sender: FDA-Public Use
  Company Number: 340462

PATIENT
  Age: 46 Year
  Sex: Female
  Weight: 113.4 kg

DRUGS (7)
  1. ACTOS [Concomitant]
  2. PRAVACHOL [Concomitant]
  3. GLIMEPIRIDE [Concomitant]
  4. VICTOZA [Suspect]
     Indication: TYPE 2 DIABETES MELLITUS
     Dosage: 0.6 MG, QD, SUBCUTANEOUS, 1.2 MG, QD, SUBCUTANEOUS, 1.8 MG, QD, SUBCUTANEOUS
     Route: 058
     Dates: start: 20110718, end: 20110802
  5. VICTOZA [Suspect]
     Indication: TYPE 2 DIABETES MELLITUS
     Dosage: 0.6 MG, QD, SUBCUTANEOUS, 1.2 MG, QD, SUBCUTANEOUS, 1.8 MG, QD, SUBCUTANEOUS
     Route: 058
     Dates: start: 20110627, end: 20110717
  6. VICTOZA [Suspect]
     Indication: TYPE 2 DIABETES MELLITUS
     Dosage: 0.6 MG, QD, SUBCUTANEOUS, 1.2 MG, QD, SUBCUTANEOUS, 1.8 MG, QD, SUBCUTANEOUS
     Route: 058
     Dates: start: 20110803, end: 20111114
  7. HYDROCHLOROTHIAZIDE [Concomitant]

REACTIONS (1)
  - PANCREATITIS ACUTE [None]
